FAERS Safety Report 7634898 (Version 5)
Quarter: 2014Q2

REPORT INFORMATION
  Report Type: Spontaneous
  Country: US (occurrence: US)
  Receive Date: 20101020
  Receipt Date: 20140529
  Transmission Date: 20141212
  Serious: Yes (Other)
  Sender: FDA-Public Use
  Company Number: US-ROCHE-722282

PATIENT
  Sex: Female
  Weight: 66.7 kg

DRUGS (1)
  1. ACCUTANE [Suspect]
     Indication: ACNE
     Route: 065
     Dates: start: 19990201, end: 19990406

REACTIONS (6)
  - Inflammatory bowel disease [Unknown]
  - Colitis ulcerative [Unknown]
  - Depression [Not Recovered/Not Resolved]
  - Suicidal ideation [Unknown]
  - Intentional self-injury [Unknown]
  - Crohn^s disease [Unknown]
